FAERS Safety Report 5119047-5 (Version None)
Quarter: 2006Q3

REPORT INFORMATION
  Report Type: 
  Country: None (occurrence: None)
  Receive Date: 20060927
  Receipt Date: 20060919
  Transmission Date: 20061208
  Serious: Yes (Other)
  Sender: FDA-Public Use
  Company Number: 2006113289

PATIENT
  Age: 43 Year
  Sex: Female
  Weight: 81.6475 kg

DRUGS (5)
  1. ZOLOFT [Suspect]
     Indication: ANXIETY
     Dosage: 225 MG (75 MG, 3 IN 1 D)
     Dates: start: 20060301
  2. VOLTAREN [Concomitant]
  3. HYDROCODONE (HYDROCODONE) [Concomitant]
  4. DIAZEPAM [Concomitant]
  5. VALTREX [Concomitant]

REACTIONS (4)
  - GAIT DISTURBANCE [None]
  - INTERVERTEBRAL DISC PROTRUSION [None]
  - JOINT SPRAIN [None]
  - NERVE COMPRESSION [None]
